FAERS Safety Report 11729065 (Version 1)
Quarter: 2015Q4

REPORT INFORMATION
  Report Type: Spontaneous
  Country: US (occurrence: US)
  Receive Date: 20151110
  Receipt Date: 20151110
  Transmission Date: 20160304
  Serious: No
  Sender: FDA-Public Use
  Company Number: US-ELI_LILLY_AND_COMPANY-US201111001947

PATIENT
  Sex: Female

DRUGS (2)
  1. FORTEO [Suspect]
     Active Substance: TERIPARATIDE
     Indication: OSTEOPOROSIS
     Dosage: 20 UG, QD
     Dates: start: 20111021
  2. FORTEO [Suspect]
     Active Substance: TERIPARATIDE
     Dosage: 20 UG, QD
     Dates: end: 20111110

REACTIONS (18)
  - Cold sweat [Unknown]
  - Feeling cold [Unknown]
  - Adverse drug reaction [Unknown]
  - Dizziness [Unknown]
  - Headache [Not Recovered/Not Resolved]
  - Neck pain [Unknown]
  - Nausea [Unknown]
  - Nausea [Recovering/Resolving]
  - Muscle spasms [Not Recovered/Not Resolved]
  - Feeling hot [Unknown]
  - Malaise [Recovering/Resolving]
  - Abdominal pain [Unknown]
  - Vertigo [Unknown]
  - Pain [Unknown]
  - Migraine [Unknown]
  - Injection site erythema [Unknown]
  - Dyskinesia [Unknown]
  - Pyrexia [Unknown]
